FAERS Safety Report 5763917-1 (Version None)
Quarter: 2008Q2

REPORT INFORMATION
  Report Type: 
  Country: None (occurrence: None)
  Receive Date: 20080606
  Receipt Date: 20080606
  Transmission Date: 20081010
  Serious: Yes (Hospitalization)
  Sender: FDA-Public Use
  Company Number: None

PATIENT
  Age: 34 Year
  Sex: Female
  Weight: 79.3795 kg

DRUGS (1)
  1. COPAXONE [Suspect]
     Indication: MULTIPLE SCLEROSIS
     Dosage: 20 ML EVERY DAY SQ
     Route: 058
     Dates: start: 20031207, end: 20080316

REACTIONS (4)
  - CHILLS [None]
  - CONVULSION [None]
  - DYSPNOEA [None]
  - FLUSHING [None]
